FAERS Safety Report 6669838-4 (Version None)
Quarter: 2010Q2

REPORT INFORMATION
  Report Type: 
  Country: None (occurrence: None)
  Receive Date: 20100406
  Receipt Date: 20100111
  Transmission Date: 20101027
  Serious: No
  Sender: FDA-Public Use
  Company Number: US-ALLERGAN-0906293US

PATIENT
  Age: 27 Year
  Sex: Female
  Weight: 58.05 kg

DRUGS (2)
  1. LATISSE [Suspect]
     Indication: HYPOTRICHOSIS
     Dosage: UNK, QHS
     Route: 061
     Dates: start: 20090301, end: 20090420
  2. LATISSE [Suspect]

REACTIONS (6)
  - DRY EYE [None]
  - DRY SKIN [None]
  - HAIR DISORDER [None]
  - HAIR TEXTURE ABNORMAL [None]
  - MADAROSIS [None]
  - TRICHORRHEXIS [None]
